FAERS Safety Report 18799335 (Version 1)
Quarter: 2021Q1

REPORT INFORMATION
  Report Type: Report from Study
  Country: GB (occurrence: GB)
  Receive Date: 20210128
  Receipt Date: 20210128
  Transmission Date: 20210419
  Serious: Yes (Other)
  Sender: FDA-Public Use
  Company Number: GB-SAMSUNG BIOEPIS-SB-2021-01609

PATIENT
  Age: 47 Year
  Sex: Female

DRUGS (1)
  1. IMRALDI [Suspect]
     Active Substance: ADALIMUMAB
     Indication: PSORIATIC ARTHROPATHY
     Route: 058
     Dates: start: 20200115

REACTIONS (4)
  - Wrong technique in product usage process [Unknown]
  - Shock [Unknown]
  - Incorrect dose administered [Unknown]
  - Injection site pain [Unknown]
